FAERS Safety Report 8225010-8 (Version None)
Quarter: 2012Q1

REPORT INFORMATION
  Report Type: 
  Country: None (occurrence: None)
  Receive Date: 20120321
  Receipt Date: 20120306
  Transmission Date: 20120608
  Serious: Yes (Other)
  Sender: FDA-Public Use
  Company Number: CA-GLAXOSMITHKLINE-A0970270A

PATIENT
  Age: 57 Year
  Sex: Male
  Weight: 61.4 kg

DRUGS (2)
  1. CRESTOR [Concomitant]
     Indication: BLOOD CHOLESTEROL
  2. NICORETTE [Suspect]
     Indication: SMOKING CESSATION THERAPY
     Dosage: 10GUM PER DAY
     Route: 002

REACTIONS (2)
  - NEOPLASM RECURRENCE [None]
  - INTENTIONAL DRUG MISUSE [None]
